FAERS Safety Report 8021050-2 (Version None)
Quarter: 2011Q4

REPORT INFORMATION
  Report Type: 
  Country: None (occurrence: None)
  Receive Date: 20111229
  Receipt Date: 20111213
  Transmission Date: 20120403
  Serious: Yes (Disabling)
  Sender: FDA-Public Use
  Company Number: FK201103013

PATIENT
  Age: 7 Year

DRUGS (3)
  1. CISPLATIN [Suspect]
     Indication: MEDULLOBLASTOMA
  2. IFOSFAMIDE [Suspect]
     Indication: MEDULLOBLASTOMA
  3. ETOPOSIDE [Suspect]
     Indication: MEDULLOBLASTOMA

REACTIONS (1)
  - BONE MARROW FAILURE [None]
